FAERS Safety Report 10442418 (Version 2)
Quarter: 2014Q3

REPORT INFORMATION
  Report Type: Spontaneous
  Country: US (occurrence: US)
  Receive Date: 20140909
  Receipt Date: 20140917
  Transmission Date: 20150326
  Serious: Yes (Other)
  Sender: FDA-Public Use
  Company Number: US-PFIZER INC-2014248950

PATIENT
  Age: 60 Year
  Sex: Male
  Weight: 113 kg

DRUGS (5)
  1. CATAPRES [Concomitant]
     Active Substance: CLONIDINE HYDROCHLORIDE
     Indication: HYPERTENSION
     Dosage: 0.5 MG, 2X/DAY
  2. CHANTIX [Suspect]
     Active Substance: VARENICLINE TARTRATE
     Indication: SMOKING CESSATION THERAPY
     Dosage: 0.5 MG, 1X/DAY
     Route: 048
     Dates: start: 20140601, end: 2014
  3. MS CONTIN [Interacting]
     Active Substance: MORPHINE SULFATE
     Indication: PAIN
     Dosage: 60 MG, UNK
  4. CHANTIX [Interacting]
     Active Substance: VARENICLINE TARTRATE
     Dosage: 1 MG, 2X/DAY
     Route: 048
     Dates: start: 2014
  5. CLONAZEPAM. [Concomitant]
     Active Substance: CLONAZEPAM
     Indication: ANXIETY
     Dosage: UNK

REACTIONS (31)
  - Hallucination [Unknown]
  - Nervous system disorder [Unknown]
  - Blood glucose increased [Unknown]
  - Constipation [Unknown]
  - Scrotal irritation [Unknown]
  - Arteriosclerosis [Unknown]
  - Nervousness [Unknown]
  - Feeling cold [Recovered/Resolved]
  - Chills [Recovered/Resolved]
  - Polydipsia [Unknown]
  - Social avoidant behaviour [Unknown]
  - Hypothermia [Recovered/Resolved]
  - Urine abnormality [Unknown]
  - Scrotal disorder [Unknown]
  - Gait disturbance [Unknown]
  - Middle insomnia [Recovered/Resolved]
  - Abnormal dreams [Unknown]
  - Muscle spasms [Unknown]
  - Drug interaction [Unknown]
  - Visual impairment [Recovered/Resolved]
  - Suicidal ideation [Unknown]
  - Faeces hard [Unknown]
  - Drug ineffective [Unknown]
  - Mental disorder [Unknown]
  - Frustration [Unknown]
  - Dyspnoea [Recovered/Resolved]
  - Therapeutic response changed [Unknown]
  - Abdominal pain upper [Unknown]
  - Anxiety [Unknown]
  - Oxygen consumption increased [Unknown]
  - Fear of death [Recovered/Resolved]

NARRATIVE: CASE EVENT DATE: 2014
